FAERS Safety Report 7257782-3 (Version None)
Quarter: 2011Q1

REPORT INFORMATION
  Report Type: 
  Country: None (occurrence: None)
  Receive Date: 20110129
  Receipt Date: 20100524
  Transmission Date: 20110831
  Serious: Yes (Other)
  Sender: FDA-Public Use
  Company Number: US-ABBOTT-10P-163-0647113-00

PATIENT
  Sex: Female

DRUGS (4)
  1. FOLIC ACID [Concomitant]
     Indication: PSORIASIS
  2. ALDARA [Concomitant]
     Indication: SKIN CANCER
  3. HUMIRA [Suspect]
     Indication: PSORIASIS
     Route: 058
     Dates: start: 20090101, end: 20100416
  4. METHOTREXATE [Concomitant]
     Indication: PSORIASIS

REACTIONS (2)
  - BASAL CELL CARCINOMA [None]
  - BREAST CANCER [None]
